FAERS Safety Report 18928003 (Version 1)
Quarter: 2021Q1

REPORT INFORMATION
  Report Type: Report from Study
  Country: GB (occurrence: GB)
  Receive Date: 20210223
  Receipt Date: 20210223
  Transmission Date: 20210420
  Serious: Yes (Other)
  Sender: FDA-Public Use
  Company Number: NVSC2021GB040455

PATIENT
  Sex: Male

DRUGS (1)
  1. OMNITROPE [Suspect]
     Active Substance: SOMATROPIN
     Indication: GROWTH HORMONE DEFICIENCY
     Dosage: 0.5 MG, QD
     Route: 058

REACTIONS (7)
  - COVID-19 [Unknown]
  - Oral mucosal blistering [Unknown]
  - Dizziness [Unknown]
  - Gait inability [Unknown]
  - Confusional state [Unknown]
  - Parkinson^s disease [Unknown]
  - Pyrexia [Unknown]
